FAERS Safety Report 23183373 (Version 5)
Quarter: 2024Q3

REPORT INFORMATION
  Report Type: Spontaneous
  Country: CA (occurrence: CA)
  Receive Date: 20231114
  Receipt Date: 20240709
  Transmission Date: 20241017
  Serious: Yes (Hospitalization, Other)
  Sender: PFIZER
  Company Number: CA-PFIZER INC-202300135934

PATIENT
  Age: 68 Year
  Sex: Male

DRUGS (2)
  1. RUXIENCE [Suspect]
     Active Substance: RITUXIMAB-PVVR
     Indication: Immunoglobulin G4 related disease
     Dosage: 500 MG, SINGLE DOSE, EVERY 6 MONTHS
     Route: 042
     Dates: start: 20230426
  2. RUXIENCE [Suspect]
     Active Substance: RITUXIMAB-PVVR
     Dosage: 500 MG, EVERY 6 MONTH (AFTER 7 MONTHS AND 23 DAYS)
     Route: 042
     Dates: start: 20231219

REACTIONS (3)
  - Parkinson^s disease [Unknown]
  - Off label use [Unknown]
  - Inappropriate schedule of product administration [Unknown]

NARRATIVE: CASE EVENT DATE: 20230101
